FAERS Safety Report 14607293 (Version 2)
Quarter: 2018Q2

REPORT INFORMATION
  Report Type: Spontaneous
  Country: US (occurrence: US)
  Receive Date: 20180307
  Receipt Date: 20180518
  Transmission Date: 20180711
  Serious: No
  Sender: FDA-Public Use
  Company Number: US-PFIZER INC-2018091526

PATIENT
  Age: 82 Year
  Sex: Female

DRUGS (9)
  1. KYTRIL [Concomitant]
     Active Substance: GRANISETRON HYDROCHLORIDE
     Dosage: 1 MG, 2X/DAY
     Route: 048
  2. LORAZEPAM. [Concomitant]
     Active Substance: LORAZEPAM
     Dosage: 0.5 MG, 1X/DAY (8 PM)
  3. PEMBROLIZUMAB. [Concomitant]
     Active Substance: PEMBROLIZUMAB
     Dosage: UNK
     Dates: start: 20170829, end: 201801
  4. PEMBROLIZUMAB. [Concomitant]
     Active Substance: PEMBROLIZUMAB
     Dosage: UNK, CYCLIC (4CYCLES)
     Route: 048
     Dates: start: 20170605
  5. CARBOPLATINUM [Concomitant]
     Active Substance: CARBOPLATIN
     Dosage: UNK, CYCLIC (4 CYCLES)
     Route: 048
     Dates: start: 20170605
  6. XALKORI [Suspect]
     Active Substance: CRIZOTINIB
     Indication: LUNG NEOPLASM MALIGNANT
     Dosage: 500 MG, DAILY (2DF)
     Route: 048
     Dates: start: 20180130, end: 2018
  7. XALKORI [Suspect]
     Active Substance: CRIZOTINIB
     Dosage: 200 MG, 2X/DAY
     Dates: start: 2018, end: 20180306
  8. PEMETREXED. [Concomitant]
     Active Substance: PEMETREXED
     Dosage: UNK
     Dates: start: 20170829, end: 201801
  9. PEMETREXED. [Concomitant]
     Active Substance: PEMETREXED
     Dosage: UNK,CYCLIC (4 CYCLES)
     Route: 048
     Dates: start: 20170605

REACTIONS (7)
  - Nausea [Recovered/Resolved]
  - Transaminases increased [Recovered/Resolved]
  - Dyspepsia [Unknown]
  - Intentional product misuse [Unknown]
  - Weight decreased [Not Recovered/Not Resolved]
  - Malaise [Unknown]
  - Decreased appetite [Recovered/Resolved]

NARRATIVE: CASE EVENT DATE: 2018
